FAERS Safety Report 12496771 (Version 2)
Quarter: 2016Q3

REPORT INFORMATION
  Report Type: Report from Study
  Country: US (occurrence: US)
  Receive Date: 20160624
  Receipt Date: 20160711
  Transmission Date: 20161109
  Serious: Yes (Other)
  Sender: FDA-Public Use
  Company Number: US-009507513-1606USA008907

PATIENT
  Sex: Female

DRUGS (1)
  1. JANUMET [Suspect]
     Active Substance: METFORMIN HYDROCHLORIDE\SITAGLIPTIN PHOSPHATE
     Dosage: UNK
     Route: 048

REACTIONS (7)
  - Renal injury [Unknown]
  - Pneumonia [Unknown]
  - Muscle injury [Unknown]
  - Blood glucose increased [Unknown]
  - Bronchitis [Unknown]
  - Fatigue [Unknown]
  - Syncope [Unknown]
